FAERS Safety Report 17827263 (Version 2)
Quarter: 2020Q3

REPORT INFORMATION
  Report Type: Spontaneous
  Country: US (occurrence: US)
  Receive Date: 20200527
  Receipt Date: 20200703
  Transmission Date: 20201102
  Serious: No
  Sender: FDA-Public Use
  Company Number: US-GILEAD-2020-0468466

PATIENT
  Sex: Female

DRUGS (11)
  1. VALTREX [Concomitant]
     Active Substance: VALACYCLOVIR HYDROCHLORIDE
  2. BENGAY [CAMPHOR;MENTHOL;METHYL SALICYLATE] [Concomitant]
  3. GABAPENTIN. [Concomitant]
     Active Substance: GABAPENTIN
  4. POTASSIUM [Concomitant]
     Active Substance: POTASSIUM
  5. HYDROCODONE/ACETAMINOPHEN [Concomitant]
     Active Substance: ACETAMINOPHEN\HYDROCODONE
  6. DIAZEPAM. [Concomitant]
     Active Substance: DIAZEPAM
  7. LASIX [Concomitant]
     Active Substance: FUROSEMIDE
  8. XANAX [Concomitant]
     Active Substance: ALPRAZOLAM
  9. ENULOSE [Concomitant]
     Active Substance: LACTULOSE
  10. MOBIC [Concomitant]
     Active Substance: MELOXICAM
  11. SOFOSBUVIR;VELPATASVIR [Suspect]
     Active Substance: SOFOSBUVIR\VELPATASVIR
     Indication: CHRONIC HEPATITIS C
     Dosage: 1 DOSAGE FORM, QD
     Route: 048

REACTIONS (2)
  - Swelling [Unknown]
  - Dysphonia [Unknown]
